FAERS Safety Report 7884359-9 (Version None)
Quarter: 2011Q4

REPORT INFORMATION
  Report Type: 
  Country: None (occurrence: None)
  Receive Date: 20111102
  Receipt Date: 20111024
  Transmission Date: 20120403
  Serious: Yes (Hospitalization)
  Sender: FDA-Public Use
  Company Number: CA-PFIZER INC-2011263861

PATIENT
  Age: 71 Year
  Sex: Male

DRUGS (3)
  1. CIPRO [Interacting]
  2. PANTOPRAZOLE [Suspect]
     Indication: GASTROOESOPHAGEAL REFLUX DISEASE
     Dosage: 40 MG, 2X/DAY
     Dates: start: 20110901, end: 20111001
  3. SEPTRA [Interacting]

REACTIONS (5)
  - DRUG INTERACTION [None]
  - CHILLS [None]
  - BODY TEMPERATURE INCREASED [None]
  - MIDDLE INSOMNIA [None]
  - MICTURITION DISORDER [None]
